FAERS Safety Report 16497937 (Version 2)
Quarter: 2019Q4

REPORT INFORMATION
  Report Type: Spontaneous
  Country: US (occurrence: US)
  Receive Date: 20190628
  Receipt Date: 20191120
  Transmission Date: 20200122
  Serious: Yes (Hospitalization, Other)
  Sender: FDA-Public Use
  Company Number: US-ROCHE-2221063

PATIENT
  Age: 68 Year
  Sex: Female
  Weight: 74.91 kg

DRUGS (3)
  1. ACTEMRA [Suspect]
     Active Substance: TOCILIZUMAB
     Indication: RHEUMATOID ARTHRITIS
     Dosage: ONE DOSE ONLY
     Route: 042
     Dates: start: 20181112
  2. ORENCIA [Concomitant]
     Active Substance: ABATACEPT
     Indication: RHEUMATOID ARTHRITIS
  3. ELIQUIS [Concomitant]
     Active Substance: APIXABAN
     Indication: HYPERHOMOCYSTEINAEMIA
     Dosage: ONGOING: YES
     Route: 065
     Dates: start: 201804

REACTIONS (6)
  - Diverticulitis [Unknown]
  - Vomiting [Recovered/Resolved]
  - Pain [Recovered/Resolved]
  - Angioedema [Recovered/Resolved]
  - Abscess [Recovered/Resolved]
  - Swelling [Recovered/Resolved]

NARRATIVE: CASE EVENT DATE: 20181121
